FAERS Safety Report 4269499-8 (Version None)
Quarter: 2004Q1

REPORT INFORMATION
  Report Type: 
  Country: None (occurrence: None)
  Receive Date: 20040109
  Receipt Date: 20031225
  Transmission Date: 20041129
  Serious: Yes (Hospitalization)
  Sender: FDA-Public Use
  Company Number: 2003IM001285

PATIENT
  Age: 53 Year
  Sex: Female

DRUGS (1)
  1. INFERAX (INTERFERON ALFACON-1) [Suspect]
     Indication: HEPATITIS C

REACTIONS (2)
  - APHASIA [None]
  - CAROTID ARTERY ATHEROMA [None]
